FAERS Safety Report 5391338-2 (Version None)
Quarter: 2007Q3

REPORT INFORMATION
  Report Type: 
  Country: None (occurrence: None)
  Receive Date: 20070719
  Receipt Date: 20070705
  Transmission Date: 20080115
  Serious: Yes (Hospitalization)
  Sender: FDA-Public Use
  Company Number: CA-ELI_LILLY_AND_COMPANY-CA200706000542

PATIENT
  Age: 25 Year
  Sex: Female

DRUGS (4)
  1. ZYPREXA [Suspect]
     Dosage: 20 MG, UNK
     Dates: start: 20040101
  2. ZYPREXA [Suspect]
     Dosage: 30 MG, UNK
  3. ZYPREXA [Suspect]
     Dosage: 60 MG, UNK
  4. RISPERIDONE [Concomitant]

REACTIONS (6)
  - BODY MASS INDEX INCREASED [None]
  - DRUG INEFFECTIVE [None]
  - INTENTIONAL OVERDOSE [None]
  - OVERDOSE [None]
  - PSYCHOTIC DISORDER [None]
  - WEIGHT INCREASED [None]
